FAERS Safety Report 4985021-2 (Version None)
Quarter: 2006Q2

REPORT INFORMATION
  Report Type: 
  Country: None (occurrence: None)
  Receive Date: 20060421
  Receipt Date: 20060406
  Transmission Date: 20061013
  Serious: Yes (Hospitalization)
  Sender: FDA-Public Use
  Company Number: US016584

PATIENT
  Age: 64 Year
  Sex: Male

DRUGS (2)
  1. MODAFINIL [Suspect]
     Indication: SLEEP APNOEA SYNDROME
     Dosage: 200 MG QD ORAL
     Route: 048
     Dates: start: 20051124, end: 20051206
  2. MODAFINIL [Suspect]
     Indication: SOMNOLENCE
     Dosage: 200 MG QD ORAL
     Route: 048
     Dates: start: 20051124, end: 20051206

REACTIONS (5)
  - ANGINA PECTORIS [None]
  - ARTERY DISSECTION [None]
  - BUNDLE BRANCH BLOCK RIGHT [None]
  - CARDIAC PROCEDURE COMPLICATION [None]
  - IATROGENIC INJURY [None]
